FAERS Safety Report 19467607 (Version 2)
Quarter: 2021Q3

REPORT INFORMATION
  Report Type: Spontaneous
  Country: US (occurrence: US)
  Receive Date: 20210628
  Receipt Date: 20210729
  Transmission Date: 20211014
  Serious: Yes (Other)
  Sender: FDA-Public Use
  Company Number: US-ROCHE-2855305

PATIENT
  Age: 58 Year
  Sex: Female
  Weight: 109.87 kg

DRUGS (11)
  1. OCREVUS [Suspect]
     Active Substance: OCRELIZUMAB
     Indication: RELAPSING-REMITTING MULTIPLE SCLEROSIS
     Dosage: DATE OF TREATMENT: 17/JUN/2020, 01/JUL/2020, 01/JUL/2021, 08/JAN/2021.
     Route: 042
     Dates: start: 202007, end: 20210108
  2. ATORVASTATIN [Concomitant]
     Active Substance: ATORVASTATIN
  3. ONDANSETRON [Concomitant]
     Active Substance: ONDANSETRON
  4. FLUCONAZOLE. [Concomitant]
     Active Substance: FLUCONAZOLE
  5. AMITRIPTYLINE [Concomitant]
     Active Substance: AMITRIPTYLINE
  6. METFORMIN [Concomitant]
     Active Substance: METFORMIN HYDROCHLORIDE
  7. OMEPRAZOLE. [Concomitant]
     Active Substance: OMEPRAZOLE
  8. TIZANIDINE. [Concomitant]
     Active Substance: TIZANIDINE
  9. CARISOPRODOL. [Concomitant]
     Active Substance: CARISOPRODOL
  10. BUPROPION. [Concomitant]
     Active Substance: BUPROPION
  11. DALFAMPRIDINE. [Concomitant]
     Active Substance: DALFAMPRIDINE

REACTIONS (5)
  - Paraesthesia [Unknown]
  - Pneumonia [Not Recovered/Not Resolved]
  - Multiple sclerosis relapse [Unknown]
  - Carcinoid tumour [Unknown]
  - Hypertension [Not Recovered/Not Resolved]

NARRATIVE: CASE EVENT DATE: 202010
